FAERS Safety Report 6861914-6 (Version None)
Quarter: 2010Q3

REPORT INFORMATION
  Report Type: 
  Country: None (occurrence: None)
  Receive Date: 20100720
  Receipt Date: 20100720
  Transmission Date: 20110219
  Serious: Yes (Life-Threatening)
  Sender: FDA-Public Use
  Company Number: None

PATIENT
  Age: 39 Year
  Sex: Female
  Weight: 104.3273 kg

DRUGS (1)
  1. OCELLA NOT AVAILABLE GENERIC WALMART [Suspect]
     Indication: CONTRACEPTION
     Dosage: ONCE A DAY DAILY PO, EVERYDAY
     Route: 048
     Dates: start: 20070101, end: 20100719

REACTIONS (6)
  - CONDITION AGGRAVATED [None]
  - DEPRESSION [None]
  - MOOD SWINGS [None]
  - PRODUCT SUBSTITUTION ISSUE [None]
  - SUICIDAL IDEATION [None]
  - TOBACCO USER [None]
